FAERS Safety Report 7560122-3 (Version None)
Quarter: 2011Q2

REPORT INFORMATION
  Report Type: 
  Country: None (occurrence: None)
  Receive Date: 20110621
  Receipt Date: 20101202
  Transmission Date: 20111010
  Serious: Yes (Hospitalization)
  Sender: FDA-Public Use
  Company Number: A0899123A

PATIENT
  Age: 42 Year
  Sex: Female

DRUGS (1)
  1. AVANDIA [Suspect]
     Indication: DIABETES MELLITUS
     Dosage: 4MG TWICE PER DAY
     Route: 048
     Dates: end: 20040101

REACTIONS (6)
  - DYSPNOEA [None]
  - CHEST PAIN [None]
  - LUNG DISORDER [None]
  - HYPERTENSION [None]
  - HEART RATE IRREGULAR [None]
  - DIZZINESS [None]
